FAERS Safety Report 22201129 (Version 2)
Quarter: 2024Q1

REPORT INFORMATION
  Report Type: Spontaneous
  Country: US (occurrence: US)
  Receive Date: 20230412
  Receipt Date: 20240221
  Transmission Date: 20240410
  Serious: No
  Sender: FDA-Public Use
  Company Number: US-APOTEX-2023AP004505

PATIENT
  Age: 57 Year
  Sex: Male

DRUGS (4)
  1. IPRATROPIUM [Suspect]
     Active Substance: IPRATROPIUM
     Indication: Chronic obstructive pulmonary disease
     Dosage: UNK
  2. ALBUTEROL [Suspect]
     Active Substance: ALBUTEROL
     Indication: Chronic obstructive pulmonary disease
     Dosage: UNK
  3. FLUTICASONE [Suspect]
     Active Substance: FLUTICASONE
     Indication: Product used for unknown indication
     Dosage: UNK
  4. CROMOLYN [Suspect]
     Active Substance: CROMOLYN
     Indication: Product used for unknown indication
     Dosage: UNK

REACTIONS (1)
  - Pseudophaeochromocytoma [Unknown]
